FAERS Safety Report 19581130 (Version 1)
Quarter: 2021Q3

REPORT INFORMATION
  Report Type: Other
  Country: US (occurrence: US)
  Receive Date: 20210720
  Receipt Date: 20210720
  Transmission Date: 20211014
  Serious: No
  Sender: FDA-Public Use
  Company Number: US-ROCHE-2869712

PATIENT
  Age: 78 Year
  Sex: Female

DRUGS (3)
  1. LEVOTHYROXINE. [Concomitant]
     Active Substance: LEVOTHYROXINE
     Dosage: ONE AND A HALF OF 25MG PILL
  2. OCREVUS [Suspect]
     Active Substance: OCRELIZUMAB
     Indication: PRIMARY PROGRESSIVE MULTIPLE SCLEROSIS
     Dosage: THEN EVERY 6 MONTHS?DATE OF TREATMENT:  01/OCT/2018
     Route: 042
     Dates: start: 20180914
  3. OCREVUS [Suspect]
     Active Substance: OCRELIZUMAB
     Indication: RELAPSING MULTIPLE SCLEROSIS
     Dosage: THEN EVERY 6 MONTHS?DATE OF TREATMENT:  01/OCT/2019, 01/MAY/2020
     Route: 042
     Dates: start: 20190401

REACTIONS (7)
  - Asthenia [Not Recovered/Not Resolved]
  - Influenza [Unknown]
  - Peroneal nerve palsy [Not Recovered/Not Resolved]
  - Vulvovaginal dryness [Unknown]
  - Gait disturbance [Unknown]
  - Therapeutic response shortened [Unknown]
  - Fatigue [Unknown]

NARRATIVE: CASE EVENT DATE: 202011
